FAERS Safety Report 6581849-6 (Version None)
Quarter: 2010Q1

REPORT INFORMATION
  Report Type: 
  Country: None (occurrence: None)
  Receive Date: 20100215
  Receipt Date: 20100122
  Transmission Date: 20100710
  Serious: No
  Sender: FDA-Public Use
  Company Number: US-BAYER-201011066BCC

PATIENT
  Age: 23 Year
  Sex: Female
  Weight: 66 kg

DRUGS (4)
  1. MIDOL [Suspect]
     Indication: DRUG USE FOR UNKNOWN INDICATION
     Dosage: TOTAL DAILY DOSE: 220 MG  UNIT DOSE: 220 MG
     Route: 048
     Dates: start: 20100114
  2. ASPIRIN [Suspect]
     Indication: HEADACHE
     Dosage: TOTAL DAILY DOSE: 1 DF
     Route: 048
     Dates: start: 20100114
  3. NASAL SPRAY [Concomitant]
     Route: 045
  4. COLD MEDICATION [Concomitant]
     Route: 065

REACTIONS (1)
  - NO ADVERSE EVENT [None]
